FAERS Safety Report 5168888-7 (Version None)
Quarter: 2006Q4

REPORT INFORMATION
  Report Type: 
  Country: None (occurrence: None)
  Receive Date: 20061206
  Receipt Date: 20061206
  Transmission Date: 20070319
  Serious: Yes (Other)
  Sender: FDA-Public Use
  Company Number: None

PATIENT
  Age: 83 Year
  Sex: Female
  Weight: 62.1 kg

DRUGS (1)
  1. NAPROXEN [Suspect]
     Indication: OSTEOARTHRITIS
     Dosage: 375 MG ORAL TID
     Route: 048
     Dates: start: 20060426

REACTIONS (3)
  - DEHYDRATION [None]
  - MYCOBACTERIUM AVIUM COMPLEX INFECTION [None]
  - RENAL FAILURE ACUTE [None]
